FAERS Safety Report 4673975-3 (Version None)
Quarter: 2005Q2

REPORT INFORMATION
  Report Type: 
  Country: None (occurrence: None)
  Receive Date: 20050522
  Receipt Date: 20041013
  Transmission Date: 20051028
  Serious: Yes (Other)
  Sender: FDA-Public Use
  Company Number: 10063824-C621581-2

PATIENT
  Age: 32 Year
  Sex: Female

DRUGS (2)
  1. LACTATED RINGER'S AND DEXTROSE 5% IN PLASTIC CONTAINER [Suspect]
     Dosage: 125CC/HR, I.V.
     Route: 042
  2. LACTATED RINGER'S [Concomitant]

REACTIONS (3)
  - INFLAMMATION [None]
  - INFUSION RELATED REACTION [None]
  - RASH [None]
